FAERS Safety Report 15886318 (Version 3)
Quarter: 2019Q1

REPORT INFORMATION
  Report Type: Report from Study
  Country: US (occurrence: US)
  Receive Date: 20190129
  Receipt Date: 20190306
  Transmission Date: 20190417
  Serious: Yes (Death, Hospitalization, Other)
  Sender: FDA-Public Use
  Company Number: US-GILEAD-2019-0386339

PATIENT
  Age: 57 Year
  Sex: Female
  Weight: 77.1 kg

DRUGS (11)
  1. POTASSIUM CHLORIDE. [Concomitant]
     Active Substance: POTASSIUM CHLORIDE
  2. PROMETHAZINE HCL [Concomitant]
     Active Substance: PROMETHAZINE HYDROCHLORIDE
  3. NOVOLOG [Concomitant]
     Active Substance: INSULIN ASPART
  4. AURYXIA [Concomitant]
     Active Substance: TETRAFERRIC TRICITRATE DECAHYDRATE
  5. MECLIZINE HCL [Concomitant]
     Active Substance: MECLIZINE HYDROCHLORIDE
  6. CALCITRIOL. [Concomitant]
     Active Substance: CALCITRIOL
  7. ASPIRIN (E.C.) [Concomitant]
     Active Substance: ASPIRIN
  8. PRAVASTATIN. [Concomitant]
     Active Substance: PRAVASTATIN
  9. AMBRISENTAN [Suspect]
     Active Substance: AMBRISENTAN
     Indication: PULMONARY ARTERIAL HYPERTENSION
     Dosage: 5 MG, QD
     Route: 048
     Dates: start: 20170208
  10. RENAL [Concomitant]
  11. LEVEMIR [Concomitant]
     Active Substance: INSULIN DETEMIR

REACTIONS (6)
  - Death [Fatal]
  - Stent placement [Unknown]
  - Chronic kidney disease [Unknown]
  - Asthenia [Not Recovered/Not Resolved]
  - Vascular operation [Unknown]
  - Limb injury [Unknown]

NARRATIVE: CASE EVENT DATE: 20190122
